FAERS Safety Report 4827613-7 (Version None)
Quarter: 2005Q4

REPORT INFORMATION
  Report Type: 
  Country: None (occurrence: None)
  Receive Date: 20051110
  Receipt Date: 20051101
  Transmission Date: 20060501
  Serious: Yes (Death)
  Sender: FDA-Public Use
  Company Number: USA0511112403

PATIENT
  Age: 69 Year
  Sex: Male

DRUGS (1)
  1. XIGRIS [Suspect]
     Indication: SEPSIS

REACTIONS (5)
  - CARDIAC ARREST [None]
  - CATHETER RELATED COMPLICATION [None]
  - DIALYSIS [None]
  - PERICARDIAL EFFUSION [None]
  - RENAL FAILURE [None]
